FAERS Safety Report 9018046 (Version 1)
Quarter: 2013Q1

REPORT INFORMATION
  Report Type: Spontaneous
  Country: US (occurrence: None)
  Receive Date: 20130110
  Receipt Date: 20130110
  Transmission Date: 20140127
  Serious: Yes (Other)
  Sender: FDA-Public Use
  Company Number: None

PATIENT
  Age: 48 Year
  Sex: Female

DRUGS (1)
  1. STIVARGA 40 MG BAYER [Suspect]
     Dosage: 4 TABS QD PO
     Route: 048
     Dates: start: 20121220, end: 20121231

REACTIONS (3)
  - Back pain [None]
  - Blood bilirubin increased [None]
  - Ocular icterus [None]
